FAERS Safety Report 5547499-5 (Version None)
Quarter: 2007Q4

REPORT INFORMATION
  Report Type: 
  Country: None (occurrence: None)
  Receive Date: 20071211
  Receipt Date: 20070224
  Transmission Date: 20080405
  Serious: No
  Sender: FDA-Public Use
  Company Number: US-AMGEN-KDL212616

PATIENT
  Sex: Female

DRUGS (2)
  1. ENBREL [Suspect]
     Indication: RHEUMATOID ARTHRITIS
     Route: 058
     Dates: start: 20070210
  2. METHOTREXATE [Concomitant]
     Dates: start: 19990101

REACTIONS (5)
  - ANXIETY [None]
  - FLUSHING [None]
  - LOCALISED INFECTION [None]
  - MOOD SWINGS [None]
  - TREMOR [None]
